FAERS Safety Report 20363250 (Version 2)
Quarter: 2022Q1

REPORT INFORMATION
  Report Type: Spontaneous
  Country: JP (occurrence: JP)
  Receive Date: 20220121
  Receipt Date: 20220203
  Transmission Date: 20220424
  Serious: Yes (Death)
  Sender: FDA-Public Use
  Company Number: JP-CELGENE-JPN-20220105115

PATIENT
  Sex: Male

DRUGS (4)
  1. POMALYST [Suspect]
     Active Substance: POMALIDOMIDE
     Indication: Plasma cell myeloma
     Dosage: UNKNOWN
     Route: 048
     Dates: start: 20211008, end: 202110
  2. DEXAMETHASONE [Suspect]
     Active Substance: DEXAMETHASONE
     Indication: Plasma cell myeloma
     Dosage: UNKNOWN
     Route: 048
  3. DEXAMETHASONE [Suspect]
     Active Substance: DEXAMETHASONE
     Dosage: UNKNOWN
     Route: 048
     Dates: start: 20210702, end: 2021
  4. DEXAMETHASONE [Suspect]
     Active Substance: DEXAMETHASONE
     Dosage: UNKNOWN
     Route: 048
     Dates: start: 20211008, end: 202110

REACTIONS (1)
  - Pneumonia [Fatal]

NARRATIVE: CASE EVENT DATE: 20210101
